FAERS Safety Report 6795264-3 (Version None)
Quarter: 2010Q2

REPORT INFORMATION
  Report Type: 
  Country: None (occurrence: None)
  Receive Date: 20100625
  Receipt Date: 20100622
  Transmission Date: 20101027
  Serious: Yes (Other)
  Sender: FDA-Public Use
  Company Number: CHPA2010US09877

PATIENT
  Sex: Female

DRUGS (4)
  1. RITEAID PLP (NCH) [Suspect]
     Indication: SMOKING CESSATION THERAPY
     Dosage: 14 MG, QD
     Route: 062
  2. RITEAID PLP (NCH) [Suspect]
     Dosage: 7 MG, QD
     Route: 062
  3. RITEAID PLP (NCH) [Suspect]
     Dosage: 14 MG, QD
     Route: 062
     Dates: start: 20100508
  4. RITEAID PLP (NCH) [Suspect]
     Dosage: 21 MG, QD
     Route: 062

REACTIONS (11)
  - ANGER [None]
  - ANXIETY [None]
  - HOMICIDAL IDEATION [None]
  - INAPPROPRIATE SCHEDULE OF DRUG ADMINISTRATION [None]
  - NERVOUSNESS [None]
  - NICOTINE DEPENDENCE [None]
  - OVERDOSE [None]
  - PALPITATIONS [None]
  - SCAB [None]
  - SKIN EXFOLIATION [None]
  - TREATMENT NONCOMPLIANCE [None]
